FAERS Safety Report 6859669-4 (Version None)
Quarter: 2010Q3

REPORT INFORMATION
  Report Type: 
  Country: None (occurrence: None)
  Receive Date: 20100719
  Receipt Date: 20100716
  Transmission Date: 20110219
  Serious: Yes (Hospitalization)
  Sender: FDA-Public Use
  Company Number: BE-BRISTOL-MYERS SQUIBB COMPANY-15196272

PATIENT
  Age: 77 Year
  Sex: Female
  Weight: 60 kg

DRUGS (3)
  1. PACLITAXEL [Suspect]
     Indication: OVARIAN CANCER
     Route: 042
     Dates: start: 20100106, end: 20100512
  2. CARBOPLATIN [Suspect]
     Indication: OVARIAN CANCER
     Dosage: 1DF-AUC 6
     Route: 042
     Dates: start: 20100106, end: 20100512
  3. BLINDED: PLACEBO [Suspect]
     Indication: OVARIAN CANCER
     Dates: start: 20100106

REACTIONS (4)
  - AMNESIA [None]
  - COGNITIVE DISORDER [None]
  - CONFUSIONAL STATE [None]
  - DISORIENTATION [None]
